FAERS Safety Report 9564373 (Version 2)
Quarter: 2013Q4

REPORT INFORMATION
  Report Type: Spontaneous
  Country: US (occurrence: US)
  Receive Date: 20130930
  Receipt Date: 20131230
  Transmission Date: 20140711
  Serious: Yes (Hospitalization)
  Sender: FDA-Public Use
  Company Number: US-BIOGENIDEC-2013BI092892

PATIENT
  Age: 52 Year
  Sex: Female

DRUGS (2)
  1. AVONEX [Suspect]
     Indication: MULTIPLE SCLEROSIS
     Route: 030
     Dates: start: 20100611
  2. AVONEX [Suspect]
     Indication: MULTIPLE SCLEROSIS
     Route: 030
     Dates: start: 20120803

REACTIONS (5)
  - Uterine prolapse [Recovered/Resolved]
  - Pollakiuria [Recovered/Resolved]
  - Abdominal discomfort [Recovered/Resolved]
  - Nephrolithiasis [Recovered/Resolved]
  - Influenza like illness [Recovered/Resolved]
